FAERS Safety Report 21744379 (Version 1)
Quarter: 2022Q4

REPORT INFORMATION
  Report Type: Spontaneous
  Country: US (occurrence: US)
  Receive Date: 20221218
  Receipt Date: 20221218
  Transmission Date: 20230113
  Serious: No
  Sender: FDA-Public Use
  Company Number: US-ELI_LILLY_AND_COMPANY-US202212003339

PATIENT
  Sex: Female

DRUGS (1)
  1. MOUNJARO [Suspect]
     Active Substance: TIRZEPATIDE
     Indication: Insulin resistance
     Dosage: 7.5 MG, UNKNOWN
     Route: 065

REACTIONS (6)
  - Nocturia [Unknown]
  - Vision blurred [Unknown]
  - Sleep disorder [Unknown]
  - Feeling abnormal [Unknown]
  - Off label use [Unknown]
  - Asthenia [Unknown]
